FAERS Safety Report 6730240-8 (Version None)
Quarter: 2010Q2

REPORT INFORMATION
  Report Type: 
  Country: None (occurrence: None)
  Receive Date: 20100518
  Receipt Date: 20100510
  Transmission Date: 20101027
  Serious: Yes (Other)
  Sender: FDA-Public Use
  Company Number: US-PFIZER INC-2010059436

PATIENT
  Sex: Female
  Weight: 50 kg

DRUGS (5)
  1. CHANTIX [Suspect]
     Indication: SMOKING CESSATION THERAPY
     Dosage: UNK
     Route: 048
     Dates: start: 20070101
  2. WELLBUTRIN [Suspect]
     Dosage: UNK
  3. TOPAMAX [Concomitant]
     Indication: MIGRAINE
     Dosage: UNK
  4. TRAZODONE [Concomitant]
     Dosage: UNK, DAILY
  5. PROPRANOLOL [Concomitant]
     Dosage: 60 MG, DAILY

REACTIONS (6)
  - GLAUCOMA [None]
  - HOMICIDAL IDEATION [None]
  - MENTAL DISORDER [None]
  - NERVOUSNESS [None]
  - STRESS [None]
  - SUICIDAL IDEATION [None]
